FAERS Safety Report 20636704 (Version 1)
Quarter: 2022Q1

REPORT INFORMATION
  Report Type: Spontaneous
  Country: FR (occurrence: FR)
  Receive Date: 20220325
  Receipt Date: 20220325
  Transmission Date: 20220423
  Serious: Yes (Hospitalization)
  Sender: FDA-Public Use
  Company Number: None

PATIENT
  Age: 57 Year
  Sex: Female
  Weight: 45 kg

DRUGS (2)
  1. VALACYCLOVIR HYDROCHLORIDE [Suspect]
     Active Substance: VALACYCLOVIR HYDROCHLORIDE
     Indication: Oral herpes
     Dosage: 2 GRAM, TOTAL
     Route: 048
     Dates: start: 20210821, end: 20210821
  2. COMIRNATY [Suspect]
     Active Substance: TOZINAMERAN
     Indication: COVID-19 immunisation
     Dosage: 30 MICROGRAM, TOTAL (D2)
     Route: 030
     Dates: start: 20210819, end: 20210819

REACTIONS (3)
  - Acute kidney injury [Recovered/Resolved]
  - Hypertension [Recovering/Resolving]
  - Vomiting [Recovered/Resolved]

NARRATIVE: CASE EVENT DATE: 20210821
